FAERS Safety Report 23518773 (Version 3)
Quarter: 2024Q1

REPORT INFORMATION
  Report Type: Spontaneous
  Country: JP (occurrence: JP)
  Receive Date: 20240213
  Receipt Date: 20240321
  Transmission Date: 20240410
  Serious: Yes (Life-Threatening)
  Sender: FDA-Public Use
  Company Number: JP-CARA THERAPEUTICS, INC.-2024-00066-JP

PATIENT
  Age: 73 Year
  Sex: Male
  Weight: 65.5 kg

DRUGS (25)
  1. KORSUVA [Suspect]
     Active Substance: DIFELIKEFALIN ACETATE
     Indication: Pruritus
     Dosage: 25 ?G/ DAY
     Route: 042
     Dates: start: 20240131, end: 20240131
  2. DESLORATADINE [Concomitant]
     Active Substance: DESLORATADINE
     Indication: Product used for unknown indication
     Dosage: 5 MG AFTER DINNER, 5 MG/ DAY
     Route: 048
  3. UREA [Concomitant]
     Active Substance: UREA
     Indication: Product used for unknown indication
     Dosage: UNK
  4. HEPARIN SODIUM [Concomitant]
     Active Substance: HEPARIN SODIUM
     Indication: Haemodialysis
     Dosage: 4000 IU DAILY DOSES: 3 TIMES A WEEK (AS APPROPRIATE/NEEDED)
     Route: 042
     Dates: start: 20171212
  5. LEVOCARNITINE FF [Concomitant]
     Indication: Carnitine deficiency
     Dosage: 1000 MG 3 TIMES A WEEK (AS APPROPRIATE/NEEDED)
     Route: 042
     Dates: start: 20180129
  6. ROCALTROL [Concomitant]
     Active Substance: CALCITRIOL
     Indication: Hyperparathyroidism
     Dosage: 0.5 ?G, 0.5 ?G/ WEEK
     Route: 042
     Dates: start: 20220720
  7. IRON SUCROSE [Concomitant]
     Active Substance: IRON SUCROSE
     Indication: Iron deficiency anaemia
     Dosage: 40 MG, 40 MG/ WEEK
     Route: 042
     Dates: start: 20231108
  8. ROXADUSTAT [Concomitant]
     Active Substance: ROXADUSTAT
     Indication: Nephrogenic anaemia
     Dosage: 200 MG 3 TIMES A WEEK (AS APPROPRIATE/NEEDED), 200 MG/
     Route: 048
     Dates: start: 20231020
  9. AMEZINIUM METILSULFATE [Concomitant]
     Active Substance: AMEZINIUM METILSULFATE
     Indication: Product used for unknown indication
     Dosage: 10 MG AFTER BREAKFAST, 10 MG/ DAY
     Route: 048
  10. PRASUGREL HYDROCHLORIDE [Concomitant]
     Active Substance: PRASUGREL HYDROCHLORIDE
     Indication: Product used for unknown indication
     Dosage: 3.75 MG/ DAY
     Route: 048
  11. VONOPRAZAN FUMARATE [Concomitant]
     Active Substance: VONOPRAZAN FUMARATE
     Indication: Product used for unknown indication
     Dosage: 20 MG AFTER BREAKFAST, 20 MG/ DAY
     Route: 048
  12. FUROSEMIDE [Concomitant]
     Active Substance: FUROSEMIDE
     Indication: Product used for unknown indication
     Dosage: 40 MG AFTER BREAKFAST, 40 MG/ DAY
     Route: 048
  13. BENSERAZIDE HYDROCHLORIDE\LEVODOPA [Concomitant]
     Active Substance: BENSERAZIDE HYDROCHLORIDE\LEVODOPA
     Indication: Product used for unknown indication
     Dosage: THREE TIMES A DAY, AFTER EACH MEAL
     Route: 048
  14. LIMAPROST [Concomitant]
     Active Substance: LIMAPROST
     Indication: Product used for unknown indication
     Dosage: 15 ?G AFTER EACH MEAL, 15 ?G/ DAY
     Route: 048
  15. METHYLCOBALAMIN [Concomitant]
     Active Substance: METHYLCOBALAMIN
     Indication: Product used for unknown indication
     Dosage: 1.5 MG AFTER EACH MEAL, 1.5 MG/ DAY
     Route: 048
  16. AMIYU [AMINO ACIDS NOS] [Concomitant]
     Indication: Product used for unknown indication
     Dosage: 7.5 G AFTER EACH MEAL, 7.5 G/ DAY
     Route: 048
  17. ATORVASTATIN [Concomitant]
     Active Substance: ATORVASTATIN
     Indication: Product used for unknown indication
     Dosage: 5 MG AFTER DINNER, 5 MG/ DAY
     Route: 048
  18. MIROGABALIN BESYLATE [Concomitant]
     Active Substance: MIROGABALIN BESYLATE
     Indication: Product used for unknown indication
     Dosage: 5 MG AFTER DINNER, 5 MG/ DAY
     Route: 048
  19. AMLODIPINE BESYLATE [Concomitant]
     Active Substance: AMLODIPINE BESYLATE
     Indication: Product used for unknown indication
     Dosage: 5 MG AFTER DINNER, 5 MG/ DAY
     Route: 048
  20. ENTRESTO [Concomitant]
     Active Substance: SACUBITRIL\VALSARTAN
     Indication: Product used for unknown indication
     Dosage: 200 MG AFTER BREAKFAST AND DINNER, 200 MG/ DAY
     Route: 048
  21. CARVEDILOL [Concomitant]
     Active Substance: CARVEDILOL
     Indication: Product used for unknown indication
     Dosage: 5 MG AFTER BREAKFAST AND DINNER, 5 MG/ DAY
     Route: 048
  22. CALCIUM CARBONATE [Concomitant]
     Active Substance: CALCIUM CARBONATE
     Indication: Hyperphosphataemia
     Dosage: 4500 MG IMMEDIATELY AFTER EACH MEAL, 4500 MG/ DAY
     Route: 048
  23. LANTHANUM CARBONATE [Concomitant]
     Active Substance: LANTHANUM CARBONATE
     Indication: Product used for unknown indication
     Dosage: 1500 MG IMMEDIATELY AFTER EACH MEAL, 1500 MG/ DAY
     Route: 048
  24. LINZESS [Concomitant]
     Active Substance: LINACLOTIDE
     Indication: Product used for unknown indication
     Dosage: 0.5 MG BEFORE DINNER, 0.5 MG/ DAY
     Route: 048
  25. AMEZINIUM METILSULFATE [Concomitant]
     Active Substance: AMEZINIUM METILSULFATE
     Indication: Product used for unknown indication
     Dosage: 10 MG TAKEN ONLY ON MONDAY, WEDNESDAY AND FRIDAY 1 TIMES A DAY, AFTER BREAKFAST, 10 MG/
     Route: 048

REACTIONS (1)
  - Anaphylactic shock [Recovered/Resolved]

NARRATIVE: CASE EVENT DATE: 20240202
